FAERS Safety Report 10246443 (Version 1)
Quarter: 2014Q2

REPORT INFORMATION
  Report Type: Spontaneous
  Country: US (occurrence: US)
  Receive Date: 20140619
  Receipt Date: 20140619
  Transmission Date: 20141212
  Serious: Yes (Death)
  Sender: FDA-Public Use
  Company Number: US-JNJFOC-20140612865

PATIENT
  Age: 50 Year
  Sex: Female

DRUGS (2)
  1. REMICADE [Suspect]
     Indication: CROHN^S DISEASE
     Route: 042
     Dates: start: 20140610
  2. REMICADE [Suspect]
     Indication: CROHN^S DISEASE
     Dosage: HAS BEEN ON INFLIXIMAB FOR ABOUT 4 YEARS
     Route: 042

REACTIONS (1)
  - Intracranial aneurysm [Fatal]
